FAERS Safety Report 17040743 (Version 1)
Quarter: 2019Q4

REPORT INFORMATION
  Report Type: Spontaneous
  Country: US (occurrence: US)
  Receive Date: 20191117
  Receipt Date: 20191117
  Transmission Date: 20200122
  Serious: No
  Sender: FDA-Public Use
  Company Number: US-GILEAD-2019-0437752

PATIENT
  Sex: Female

DRUGS (1)
  1. EPCLUSA [Suspect]
     Active Substance: SOFOSBUVIR\VELPATASVIR
     Indication: CHRONIC HEPATITIS C
     Dosage: 1 DOSAGE FORM, QD
     Route: 048
     Dates: start: 201910

REACTIONS (8)
  - Menstruation irregular [Unknown]
  - Menorrhagia [Unknown]
  - Drug hypersensitivity [Unknown]
  - Chest pain [Unknown]
  - Epistaxis [Unknown]
  - Malaise [Not Recovered/Not Resolved]
  - Heart rate irregular [Unknown]
  - Platelet count decreased [Not Recovered/Not Resolved]
